FAERS Safety Report 19980389 (Version 1)
Quarter: 2021Q4

REPORT INFORMATION
  Report Type: Spontaneous
  Country: LV (occurrence: LV)
  Receive Date: 20211021
  Receipt Date: 20211021
  Transmission Date: 20220303
  Serious: Yes (Hospitalization, Other)
  Sender: FDA-Public Use
  Company Number: None

PATIENT
  Age: 66 Year
  Sex: Male
  Weight: 75 kg

DRUGS (5)
  1. METOPROLOL [Suspect]
     Active Substance: METOPROLOL
     Indication: Product used for unknown indication
     Dosage: 95 MILLIGRAM, QD
     Route: 048
  2. ESOMEPRAZOLE MAGNESIUM [Suspect]
     Active Substance: ESOMEPRAZOLE MAGNESIUM
     Indication: Gastrooesophageal reflux disease
     Dosage: 20 MILLIGRAM, BID
     Route: 048
  3. AMLODIPINE\ATORVASTATIN\PERINDOPRIL [Suspect]
     Active Substance: AMLODIPINE\ATORVASTATIN\PERINDOPRIL
     Indication: Essential hypertension
     Dosage: 1 TABLET (20 MG/10 MG/5 MG) ONCE PER DAY
     Route: 048
  4. VAXZEVRIA [Suspect]
     Active Substance: AZD-1222
     Indication: Immunisation
     Dosage: 0.5 MILLILITER, TOTAL
     Route: 030
     Dates: start: 20210407, end: 20210407
  5. TEMGICOLURIL [Suspect]
     Active Substance: TEMGICOLURIL
     Indication: Somatic symptom disorder
     Dosage: 300 MILLIGRAM, BID
     Route: 048

REACTIONS (7)
  - Immune thrombocytopenia [Recovering/Resolving]
  - Thrombocytopenia [Recovering/Resolving]
  - Epistaxis [Recovering/Resolving]
  - Haematoma [Recovering/Resolving]
  - Petechiae [Recovering/Resolving]
  - Rash erythematous [Unknown]
  - Conjunctival haemorrhage [Recovering/Resolving]

NARRATIVE: CASE EVENT DATE: 20210419
